FAERS Safety Report 9334084 (Version 1)
Quarter: 2013Q2

REPORT INFORMATION
  Report Type: Spontaneous
  Country: US (occurrence: US)
  Receive Date: 20130606
  Receipt Date: 20130606
  Transmission Date: 20140414
  Serious: No
  Sender: FDA-Public Use
  Company Number: US-AMGEN-USASP2013011064

PATIENT
  Age: 35 Year
  Sex: Female

DRUGS (4)
  1. PROLIA [Suspect]
     Indication: OSTEOPOROSIS POSTMENOPAUSAL
     Dosage: 60 MG, Q6MO
  2. ZYRTEC [Concomitant]
  3. CARDURA [Concomitant]
  4. LOPRESSOR [Concomitant]

REACTIONS (2)
  - Furuncle [Unknown]
  - Cellulitis [Unknown]
